FAERS Safety Report 4728209-8 (Version None)
Quarter: 2005Q3

REPORT INFORMATION
  Report Type: 
  Country: None (occurrence: None)
  Receive Date: 20050728
  Receipt Date: 20050728
  Transmission Date: 20060218
  Serious: Yes (Hospitalization)
  Sender: FDA-Public Use
  Company Number: None

PATIENT
  Sex: Female
  Weight: 90.7194 kg

DRUGS (2)
  1. METFORMIN  500 MG [Suspect]
     Indication: LEUKOCYTOCLASTIC VASCULITIS
     Dosage: 500 MG    BID   ORAL
     Route: 048
     Dates: start: 20050602, end: 20050620
  2. ASPIRIN [Concomitant]

REACTIONS (3)
  - IMPAIRED HEALING [None]
  - LEUKOCYTOCLASTIC VASCULITIS [None]
  - ULCER [None]
